FAERS Safety Report 15459835 (Version 1)
Quarter: 2018Q4

REPORT INFORMATION
  Report Type: Spontaneous
  Country: US (occurrence: US)
  Receive Date: 20181003
  Receipt Date: 20181003
  Transmission Date: 20190204
  Serious: No
  Sender: FDA-Public Use
  Company Number: US-TEVA-2018-US-960440

PATIENT
  Sex: Female

DRUGS (2)
  1. AUSTEDO [Suspect]
     Active Substance: DEUTETRABENAZINE
     Dosage: 6 MILLIGRAM DAILY; TAKE 1 TABLET DAILY WITH FOOD FOR 7 DAYS, THEN INCREASE TO 1 TABLET TWICE DAILY W
     Route: 048
     Dates: start: 20180110, end: 20180117
  2. AUSTEDO [Suspect]
     Active Substance: DEUTETRABENAZINE
     Dosage: 12 MILLIGRAM DAILY; TAKE 1 TABLET DAILY WITH FOOD FOR 7 DAYS, THEN INCREASE TO 1 TABLET TWICE DAILY
     Route: 048
     Dates: start: 20180117

REACTIONS (1)
  - Depression [Unknown]
